FAERS Safety Report 6832782-3 (Version None)
Quarter: 2010Q3

REPORT INFORMATION
  Report Type: 
  Country: None (occurrence: None)
  Receive Date: 20100712
  Receipt Date: 20070320
  Transmission Date: 20110219
  Serious: No
  Sender: FDA-Public Use
  Company Number: US-PFIZER INC-2007023809

PATIENT
  Sex: Female
  Weight: 54.43 kg

DRUGS (8)
  1. CHANTIX [Suspect]
     Indication: SMOKING CESSATION THERAPY
     Dates: start: 20070317
  2. FENTANYL [Concomitant]
  3. OXYCONTIN [Concomitant]
  4. SOMA [Concomitant]
  5. RISPERDAL [Concomitant]
  6. AMITRIPTYLINE HYDROCHLORIDE [Concomitant]
  7. ZOLOFT [Concomitant]
  8. AMBIEN [Concomitant]

REACTIONS (1)
  - HEADACHE [None]
